FAERS Safety Report 13999725 (Version 1)
Quarter: 2017Q3

REPORT INFORMATION
  Report Type: Other
  Country: CA (occurrence: CA)
  Receive Date: 20170922
  Receipt Date: 20170922
  Transmission Date: 20171128
  Serious: Yes (Other)
  Sender: FDA-Public Use
  Company Number: CA-APOTEX-2017AP018344

PATIENT
  Age: 45 Year
  Sex: Female

DRUGS (5)
  1. ACETAMINOPHEN. [Concomitant]
     Active Substance: ACETAMINOPHEN
     Indication: PRODUCT USED FOR UNKNOWN INDICATION
     Route: 065
  2. APO-CIPROFLOX [Suspect]
     Active Substance: CIPROFLOXACIN
     Indication: ESCHERICHIA URINARY TRACT INFECTION
     Route: 065
  3. APO-CIPROFLOX [Suspect]
     Active Substance: CIPROFLOXACIN
     Indication: URINARY TRACT INFECTION
  4. FURADANTIN [Suspect]
     Active Substance: NITROFURANTOIN
     Indication: ESCHERICHIA URINARY TRACT INFECTION
     Route: 048
  5. FURADANTIN [Suspect]
     Active Substance: NITROFURANTOIN
     Indication: URINARY TRACT INFECTION

REACTIONS (13)
  - Panniculitis [Recovering/Resolving]
  - Arthralgia [Recovering/Resolving]
  - Oral pustule [Recovering/Resolving]
  - Skin mass [Recovering/Resolving]
  - Skin plaque [Recovering/Resolving]
  - Acute febrile neutrophilic dermatosis [Not Recovered/Not Resolved]
  - Conjunctival hyperaemia [Recovering/Resolving]
  - Lacrimation increased [Recovering/Resolving]
  - Pain of skin [Recovering/Resolving]
  - Headache [Recovering/Resolving]
  - Erythema [Recovering/Resolving]
  - Dry eye [Recovering/Resolving]
  - Episcleritis [Recovering/Resolving]
